FAERS Safety Report 6015295-0 (Version None)
Quarter: 2008Q4

REPORT INFORMATION
  Report Type: 
  Country: None (occurrence: None)
  Receive Date: 20081218
  Receipt Date: 20081208
  Transmission Date: 20090506
  Serious: Yes (Hospitalization)
  Sender: FDA-Public Use
  Company Number: 2008AP003370

PATIENT
  Age: 18 Year
  Sex: Male

DRUGS (3)
  1. HALOPERIDOL [Suspect]
     Indication: SCHIZOPHRENIA
     Dosage: 10 MG; 1X; IM, 5 MG; 1X; IM
     Route: 030
  2. RISPERIDONE [Suspect]
     Indication: SCHIZOPHRENIA
     Dosage: 3 MG; 3 MG; BID
  3. DIPHENHYDRAMINE HCL [Concomitant]

REACTIONS (9)
  - ABNORMAL BEHAVIOUR [None]
  - AGITATION [None]
  - AKATHISIA [None]
  - BLOOD CREATINE PHOSPHOKINASE INCREASED [None]
  - BLOOD PRESSURE SYSTOLIC INCREASED [None]
  - DRUG TOXICITY [None]
  - DYSTONIA [None]
  - HEART RATE INCREASED [None]
  - TREATMENT NONCOMPLIANCE [None]
